FAERS Safety Report 8524789-5 (Version None)
Quarter: 2012Q3

REPORT INFORMATION
  Report Type: 
  Country: None (occurrence: None)
  Receive Date: 20120720
  Receipt Date: 20120710
  Transmission Date: 20120928
  Serious: Yes (Hospitalization)
  Sender: FDA-Public Use
  Company Number: US-GLAXOSMITHKLINE-A0983977A

PATIENT
  Age: 41 Year
  Sex: Female

DRUGS (10)
  1. CYMBALTA [Concomitant]
  2. MS CONTIN [Concomitant]
  3. OMEPRAZOLE [Concomitant]
  4. ZANAFLEX [Concomitant]
  5. METFORMIN HYDROCHLORIDE [Concomitant]
  6. IMITREX [Suspect]
     Indication: MIGRAINE
     Dosage: 6MG AS REQUIRED
     Route: 058
  7. IMITREX [Suspect]
     Indication: PRODUCT USED FOR UNKNOWN INDICATION
     Route: 065
  8. DEXEDRINE [Concomitant]
  9. ATIVAN [Concomitant]
  10. ATENOLOL [Concomitant]

REACTIONS (1)
  - SEROTONIN SYNDROME [None]
